FAERS Safety Report 6867070-2 (Version None)
Quarter: 2010Q3

REPORT INFORMATION
  Report Type: 
  Country: None (occurrence: None)
  Receive Date: 20100722
  Receipt Date: 20100630
  Transmission Date: 20110219
  Serious: Yes (Life-Threatening, Hospitalization)
  Sender: FDA-Public Use
  Company Number: A0800745A

PATIENT
  Age: 62 Year
  Sex: Male
  Weight: 105.9 kg

DRUGS (7)
  1. AVANDIA [Suspect]
     Indication: DIABETES MELLITUS
     Dosage: 4MG PER DAY
     Route: 048
     Dates: start: 20040621, end: 20070101
  2. LIPITOR [Concomitant]
  3. GLIPIZIDE [Concomitant]
  4. METOPROLOL [Concomitant]
  5. LEXAPRO [Concomitant]
  6. COMBIVENT [Concomitant]
  7. BACLOFEN [Concomitant]

REACTIONS (1)
  - MYOCARDIAL INFARCTION [None]
